FAERS Safety Report 8185885-8 (Version None)
Quarter: 2012Q1

REPORT INFORMATION
  Report Type: 
  Country: None (occurrence: None)
  Receive Date: 20120305
  Receipt Date: 20120120
  Transmission Date: 20120608
  Serious: Yes (Hospitalization, Disabling, Other)
  Sender: FDA-Public Use
  Company Number: US-ROCHE-791075

PATIENT
  Sex: Male
  Weight: 68.1 kg

DRUGS (1)
  1. ACCUTANE [Suspect]
     Indication: ACNE
     Route: 065
     Dates: start: 20000101, end: 20010101

REACTIONS (10)
  - INTESTINAL HAEMORRHAGE [None]
  - HAEMORRHOIDS [None]
  - ANAL FISTULA [None]
  - INFLAMMATORY BOWEL DISEASE [None]
  - CROHN'S DISEASE [None]
  - COELIAC DISEASE [None]
  - ANAEMIA [None]
  - SMALL INTESTINAL OBSTRUCTION [None]
  - ANAL ABSCESS [None]
  - EMOTIONAL DISTRESS [None]
